FAERS Safety Report 19509220 (Version 2)
Quarter: 2021Q3

REPORT INFORMATION
  Report Type: Spontaneous
  Country: TW (occurrence: TW)
  Receive Date: 20210709
  Receipt Date: 20210714
  Transmission Date: 20211014
  Serious: Yes (Death)
  Sender: FDA-Public Use
  Company Number: TW-MTPC-MTPC2021-0016615

PATIENT

DRUGS (1)
  1. EDARAVONE [Suspect]
     Active Substance: EDARAVONE
     Dosage: UNK
     Route: 065

REACTIONS (1)
  - Death [Fatal]
